FAERS Safety Report 20006889 (Version 2)
Quarter: 2021Q4

REPORT INFORMATION
  Report Type: Spontaneous
  Country: DE (occurrence: DE)
  Receive Date: 20211028
  Receipt Date: 20211029
  Transmission Date: 20220303
  Serious: Yes (Other)
  Sender: FDA-Public Use
  Company Number: DE-ABBVIE-21K-062-4137989-00

PATIENT
  Age: 65 Year
  Sex: Male
  Weight: 65 kg

DRUGS (11)
  1. SKYRIZI [Suspect]
     Active Substance: RISANKIZUMAB-RZAA
     Indication: Psoriasis
     Dosage: 2 INJECTIONS
     Route: 058
     Dates: start: 2019
  2. SKYRIZI [Suspect]
     Active Substance: RISANKIZUMAB-RZAA
     Route: 058
     Dates: start: 202109
  3. HUMIRA [Suspect]
     Active Substance: ADALIMUMAB
     Indication: Psoriasis
     Route: 058
  4. EZETIMIBE [Concomitant]
     Active Substance: EZETIMIBE
     Indication: Product used for unknown indication
  5. ATORVASTATIN [Concomitant]
     Active Substance: ATORVASTATIN
     Indication: Product used for unknown indication
  6. PANTOPRAZOLE [Concomitant]
     Active Substance: PANTOPRAZOLE
     Indication: Product used for unknown indication
  7. PROPAFENON RATIOPHARM [Concomitant]
     Indication: Product used for unknown indication
  8. ATACAND [Concomitant]
     Active Substance: CANDESARTAN CILEXETIL
     Indication: Product used for unknown indication
  9. PLAVIX [Concomitant]
     Active Substance: CLOPIDOGREL BISULFATE
     Indication: Product used for unknown indication
  10. TADALAFIL AL [Concomitant]
     Indication: Product used for unknown indication
  11. LACTRASE [Concomitant]
     Indication: Product used for unknown indication
     Dosage: 6000 FOOD CHEMICALS CODEX UNIT

REACTIONS (8)
  - Renal failure [Unknown]
  - Creatinine renal clearance decreased [Unknown]
  - Renal cyst [Unknown]
  - Renal mass [Unknown]
  - Renal impairment [Unknown]
  - Blood creatinine increased [Unknown]
  - Atypical pneumonia [Unknown]
  - COVID-19 pneumonia [Unknown]

NARRATIVE: CASE EVENT DATE: 20200301
